FAERS Safety Report 4665454-4 (Version None)
Quarter: 2005Q2

REPORT INFORMATION
  Report Type: 
  Country: None (occurrence: None)
  Receive Date: 20050518
  Receipt Date: 20050518
  Transmission Date: 20051028
  Serious: Yes (Hospitalization)
  Sender: FDA-Public Use
  Company Number: None

PATIENT
  Sex: Female
  Weight: 70 kg

DRUGS (10)
  1. FLUDARABINE [Suspect]
     Indication: ACUTE MYELOID LEUKAEMIA
     Dosage: 57 MG IV    5DOSES
     Route: 042
     Dates: start: 20041028, end: 20041101
  2. MELPHALAN [Suspect]
     Indication: TRANSPLANT
     Dosage: IV
     Route: 042
     Dates: start: 20041102
  3. CAMPATH [Suspect]
     Dosage: 20 MG
     Dates: start: 20041128
  4. VORICONAZOLE [Concomitant]
  5. VLATREX [Concomitant]
  6. BACTRIM [Concomitant]
  7. PREVACID [Concomitant]
  8. CYCLOSPORINE [Concomitant]
  9. NORVASC [Concomitant]
  10. TROPROL [Concomitant]

REACTIONS (1)
  - DIARRHOEA [None]
